FAERS Safety Report 13434081 (Version 4)
Quarter: 2018Q2

REPORT INFORMATION
  Report Type: Spontaneous
  Country: DK (occurrence: DK)
  Receive Date: 20170412
  Receipt Date: 20180530
  Transmission Date: 20180711
  Serious: Yes (Hospitalization)
  Sender: FDA-Public Use
  Company Number: DK-NOVOPROD-539698

PATIENT
  Age: 38 Year
  Sex: Female

DRUGS (4)
  1. ORGALUTRAN [Suspect]
     Active Substance: GANIRELIX ACETATE
     Indication: INFERTILITY FEMALE
  2. PUREGON                            /01348901/ [Suspect]
     Active Substance: FOLLITROPIN
     Indication: INFERTILITY FEMALE
  3. GONAPEPTYL [Suspect]
     Active Substance: TRIPTORELIN ACETATE
     Indication: INFERTILITY FEMALE
  4. ESTROFEM [Suspect]
     Active Substance: ESTRADIOL CYPIONATE
     Indication: INFERTILITY FEMALE
     Dosage: 2 MG, TID
     Dates: start: 201404

REACTIONS (2)
  - Cerebral thrombosis [Recovered/Resolved with Sequelae]
  - Hemiplegia [Unknown]

NARRATIVE: CASE EVENT DATE: 201408
